FAERS Safety Report 19321610 (Version 1)
Quarter: 2021Q2

REPORT INFORMATION
  Report Type: Spontaneous
  Country: US (occurrence: US)
  Receive Date: 20210528
  Receipt Date: 20210528
  Transmission Date: 20210717
  Serious: No
  Sender: FDA-Public Use
  Company Number: US-JNJFOC-20210539992

PATIENT
  Sex: Male
  Weight: 77.18 kg

DRUGS (1)
  1. ZYRTEC [Suspect]
     Active Substance: CETIRIZINE HYDROCHLORIDE
     Indication: MULTIPLE ALLERGIES
     Dosage: 1 TABLET?PRODUCT START DATE: FOR QUITE A WHILE
     Route: 048
     Dates: start: 2021

REACTIONS (1)
  - Overdose [Unknown]
